APPROVED DRUG PRODUCT: PROKETAZINE
Active Ingredient: CARPHENAZINE MALEATE
Strength: 50MG/ML
Dosage Form/Route: CONCENTRATE;ORAL
Application: N014173 | Product #001
Applicant: WYETH AYERST LABORATORIES
Approved: Approved Prior to Jan 1, 1982 | RLD: No | RS: No | Type: DISCN